FAERS Safety Report 7471159-7 (Version None)
Quarter: 2011Q2

REPORT INFORMATION
  Report Type: 
  Country: None (occurrence: None)
  Receive Date: 20110510
  Receipt Date: 20091016
  Transmission Date: 20111010
  Serious: Yes (Other)
  Sender: FDA-Public Use
  Company Number: DE-GENENTECH-318115

PATIENT
  Age: 80 Year
  Sex: Female

DRUGS (1)
  1. LUCENTIS [Suspect]
     Indication: MACULAR DEGENERATION
     Route: 031

REACTIONS (5)
  - EYE SWELLING [None]
  - NIGHT BLINDNESS [None]
  - VISUAL IMPAIRMENT [None]
  - RETINAL DETACHMENT [None]
  - EYE DISORDER [None]
